FAERS Safety Report 9554418 (Version 2)
Quarter: 2013Q3

REPORT INFORMATION
  Report Type: Report from Study
  Country: US (occurrence: US)
  Receive Date: 20130925
  Receipt Date: 20130925
  Transmission Date: 20140515
  Serious: Yes (Other)
  Sender: FDA-Public Use
  Company Number: US-US-EMD SERONO, INC.-7150486

PATIENT
  Sex: Female

DRUGS (4)
  1. REBIF [Suspect]
     Indication: MULTIPLE SCLEROSIS
     Route: 058
     Dates: start: 20120116
  2. ENDOCET [Concomitant]
     Indication: PAIN
  3. ENDOCET [Concomitant]
     Indication: PAIN IN EXTREMITY
  4. TYLENOL                            /00020001/ [Concomitant]
     Indication: PREMEDICATION

REACTIONS (2)
  - Neurogenic bladder [Unknown]
  - Cystitis [Unknown]
